FAERS Safety Report 11309484 (Version 1)
Quarter: 2015Q3

REPORT INFORMATION
  Report Type: Spontaneous
  Country: JP (occurrence: JP)
  Receive Date: 20150724
  Receipt Date: 20150724
  Transmission Date: 20151125
  Serious: Yes (Death, Hospitalization, Other)
  Sender: FDA-Public Use
  Company Number: JP-GLAXOSMITHKLINE-JP2015GSK105276

PATIENT
  Age: 48 Year
  Sex: Male

DRUGS (4)
  1. TYKERB [Suspect]
     Active Substance: LAPATINIB DITOSYLATE
     Dosage: 1000 MG, QD
     Route: 048
  2. VOTRIENT [Suspect]
     Active Substance: PAZOPANIB HYDROCHLORIDE
     Dosage: 400 MG, QD
     Route: 048
  3. SUNITINIB [Suspect]
     Active Substance: SUNITINIB
     Dosage: 37.5 MG, QD
  4. SUNITINIB [Suspect]
     Active Substance: SUNITINIB
     Indication: METASTATIC RENAL CELL CARCINOMA
     Dosage: 50 MG, QD
     Route: 048

REACTIONS (10)
  - Depressed level of consciousness [Unknown]
  - Pericardial effusion [Unknown]
  - Proteinuria [Recovered/Resolved]
  - Stomatitis [Unknown]
  - Aortic dissection [Fatal]
  - Skin hypopigmentation [Unknown]
  - Blood pressure systolic increased [Unknown]
  - Thrombocytopenia [Unknown]
  - Hemiplegia [Unknown]
  - Thyroid disorder [Unknown]
